FAERS Safety Report 19695524 (Version 1)
Quarter: 2021Q3

REPORT INFORMATION
  Report Type: Spontaneous
  Country: US (occurrence: US)
  Receive Date: 20210812
  Receipt Date: 20210812
  Transmission Date: 20211014
  Serious: Yes (Hospitalization)
  Sender: FDA-Public Use
  Company Number: None

PATIENT
  Sex: Male

DRUGS (4)
  1. REPATHA [Suspect]
     Active Substance: EVOLOCUMAB
     Indication: ARTERIOSCLEROSIS
     Dosage: ?          OTHER FREQUENCY:Q 2 WKS;?
     Route: 058
     Dates: start: 20180113
  2. WARFARIN [Concomitant]
     Active Substance: WARFARIN
  3. DIOVAN [Concomitant]
     Active Substance: VALSARTAN
  4. MODERNA COVID?19 VACCINE [Suspect]
     Active Substance: CX-024414

REACTIONS (4)
  - Cardiac disorder [None]
  - Localised infection [None]
  - Lymphadenopathy [None]
  - Cellulitis [None]
